FAERS Safety Report 7356487-8 (Version None)
Quarter: 2011Q1

REPORT INFORMATION
  Report Type: 
  Country: None (occurrence: None)
  Receive Date: 20110316
  Receipt Date: 20110301
  Transmission Date: 20110831
  Serious: Yes (Hospitalization, Other)
  Sender: FDA-Public Use
  Company Number: PHHY2011US00729

PATIENT
  Sex: Female
  Weight: 57 kg

DRUGS (9)
  1. METOPROLOL [Suspect]
     Indication: BLOOD PRESSURE INCREASED
     Dosage: 5MG AM / 25MG PM
     Route: 048
     Dates: start: 20010101
  2. SYNTHROID [Suspect]
     Indication: HYPERTHYROIDISM
     Dosage: 25 MG, DAILY
     Dates: start: 20010101
  3. ZOCOR [Concomitant]
     Indication: LIPIDS INCREASED
     Dosage: 20 MG, UNK
  4. WARFARIN [Suspect]
     Indication: ATRIAL FIBRILLATION
     Dosage: 2.5 MG, DAILY
     Route: 048
     Dates: start: 20010101
  5. DIGOXIN [Suspect]
     Dosage: 125 MG, QOD
     Route: 048
     Dates: start: 20010101
  6. VITAMIN D [Concomitant]
     Dosage: DAILY
     Route: 048
     Dates: start: 20010101
  7. TASIGNA [Suspect]
  8. MAGNESIUM OXIDE [Suspect]
     Dosage: 400 MG, DAILY
     Route: 048
     Dates: start: 20110110
  9. CALCIUM CITRATE [Concomitant]
     Dosage: DAILY
     Route: 048
     Dates: start: 20010101

REACTIONS (12)
  - GAIT DISTURBANCE [None]
  - FATIGUE [None]
  - RASH GENERALISED [None]
  - RHABDOMYOLYSIS [None]
  - CHROMATURIA [None]
  - MUSCULAR WEAKNESS [None]
  - LIVER FUNCTION TEST ABNORMAL [None]
  - ASTHENIA [None]
  - RENAL FAILURE ACUTE [None]
  - RASH PRURITIC [None]
  - RASH MACULO-PAPULAR [None]
  - MYALGIA [None]
